FAERS Safety Report 16170719 (Version 6)
Quarter: 2019Q2

REPORT INFORMATION
  Report Type: Other
  Country: NL (occurrence: IT)
  Receive Date: 20190408
  Receipt Date: 20190520
  Transmission Date: 20190711
  Serious: Yes (Life-Threatening, Hospitalization, Other)
  Sender: FDA-Public Use
  Company Number: GB-DIMETHAID UK LIMITED-DIM-001342-2019

PATIENT
  Age: 67 Year
  Sex: Female

DRUGS (1)
  1. DICLOFENAC SODIUM. [Suspect]
     Active Substance: DICLOFENAC SODIUM
     Indication: ARTHRALGIA
     Dosage: UNK
     Route: 065

REACTIONS (14)
  - Blepharitis [Recovered/Resolved]
  - Scar [Recovered/Resolved]
  - Ectropion [Recovered/Resolved]
  - Photosensitivity reaction [Recovered/Resolved]
  - Angioedema [Recovered/Resolved]
  - Necrotising fasciitis [Recovered/Resolved]
  - Off label use [Unknown]
  - Body temperature increased [Recovered/Resolved]
  - Eyelid disorder [Recovered/Resolved]
  - Intentional product misuse [Recovered/Resolved]
  - Asthenia [Recovered/Resolved]
  - Condition aggravated [Recovered/Resolved]
  - Necrosis [Recovered/Resolved]
  - Product administered at inappropriate site [Unknown]
